FAERS Safety Report 20004299 (Version 1)
Quarter: 2021Q4

REPORT INFORMATION
  Report Type: Spontaneous
  Country: US (occurrence: US)
  Receive Date: 20211027
  Receipt Date: 20211027
  Transmission Date: 20220303
  Serious: Yes (Life-Threatening)
  Sender: FDA-Public Use
  Company Number: None

PATIENT
  Age: 65 Year
  Sex: Male
  Weight: 75.7 kg

DRUGS (1)
  1. SORAFENIB [Suspect]
     Active Substance: SORAFENIB
     Indication: Hepatocellular carcinoma
     Route: 048
     Dates: start: 20180409, end: 20180419

REACTIONS (9)
  - Acute myocardial infarction [None]
  - Pericarditis [None]
  - Myositis [None]
  - Flushing [None]
  - Rash papular [None]
  - Cardiotoxicity [None]
  - Electrocardiogram ST segment elevation [None]
  - Electrocardiogram ST segment elevation [None]
  - Coronary artery disease [None]

NARRATIVE: CASE EVENT DATE: 20180422
